FAERS Safety Report 8478125-3 (Version None)
Quarter: 2012Q2

REPORT INFORMATION
  Report Type: 
  Country: None (occurrence: None)
  Receive Date: 20120629
  Receipt Date: 20120625
  Transmission Date: 20120825
  Serious: Yes (Life-Threatening, Hospitalization, Other)
  Sender: FDA-Public Use
  Company Number: FR-PFIZER INC-2011241987

PATIENT
  Sex: Female
  Weight: 58 kg

DRUGS (3)
  1. SUTENT [Suspect]
     Indication: PANCREATIC NEUROENDOCRINE TUMOUR
     Dosage: 25 MG, 1X/DAY
     Route: 048
     Dates: start: 20100901
  2. METFORMIN HCL [Suspect]
     Indication: DIABETES MELLITUS
     Dosage: UNK
     Route: 048
     Dates: end: 20111008
  3. SUTENT [Suspect]
     Dosage: 12.5 MG, 1X/DAY
     Route: 048
     Dates: end: 20111008

REACTIONS (17)
  - RENAL FAILURE ACUTE [None]
  - CARDIAC FAILURE [None]
  - CYTOLYTIC HEPATITIS [None]
  - BRADYCARDIA [None]
  - OVARIAN MASS [None]
  - ABDOMINAL PAIN [None]
  - LACTIC ACIDOSIS [None]
  - LEUKOCYTOSIS [None]
  - HYPERKALAEMIA [None]
  - SCIATICA [None]
  - MULTI-ORGAN FAILURE [None]
  - HEPATIC FAILURE [None]
  - COUGH [None]
  - CARDIOGENIC SHOCK [None]
  - URINARY TRACT INFECTION [None]
  - FATIGUE [None]
  - HERNIA [None]
